FAERS Safety Report 7322835-8 (Version None)
Quarter: 2011Q1

REPORT INFORMATION
  Report Type: 
  Country: None (occurrence: None)
  Receive Date: 20110214
  Receipt Date: 20110201
  Transmission Date: 20110831
  Serious: Yes (Other)
  Sender: FDA-Public Use
  Company Number: CA-145147

PATIENT
  Sex: Female

DRUGS (1)
  1. WINRHO [Suspect]

REACTIONS (2)
  - VIRAL HEPATITIS CARRIER [None]
  - TRANSMISSION OF AN INFECTIOUS AGENT VIA A MEDICINAL PRODUCT [None]
